FAERS Safety Report 4710267-8 (Version None)
Quarter: 2005Q3

REPORT INFORMATION
  Report Type: 
  Country: None (occurrence: None)
  Receive Date: 20050711
  Receipt Date: 20050629
  Transmission Date: 20060218
  Serious: Yes (Other)
  Sender: FDA-Public Use
  Company Number: US-JNJFOC-20050607599

PATIENT
  Sex: Female

DRUGS (3)
  1. REMICADE [Suspect]
     Route: 042
  2. REMICADE [Suspect]
     Indication: RHEUMATOID ARTHRITIS
     Route: 042
  3. PREDNISONE TAB [Concomitant]
     Dates: start: 19950101

REACTIONS (10)
  - BLOOD PRESSURE DECREASED [None]
  - CHEST DISCOMFORT [None]
  - DYSPNOEA [None]
  - INFECTION [None]
  - INFUSION RELATED REACTION [None]
  - SKIN ATROPHY [None]
  - SKIN CANCER [None]
  - SOMNOLENCE [None]
  - VEIN DISORDER [None]
  - WOUND [None]
